FAERS Safety Report 12649317 (Version 1)
Quarter: 2016Q3

REPORT INFORMATION
  Report Type: Report from Study
  Country: US (occurrence: US)
  Receive Date: 20160812
  Receipt Date: 20160812
  Transmission Date: 20161109
  Serious: Yes (Hospitalization)
  Sender: FDA-Public Use
  Company Number: US-ABBVIE-16P-163-1697543-00

PATIENT
  Age: 63 Year
  Sex: Male
  Weight: 81.72 kg

DRUGS (2)
  1. VIEKIRA PAK [Suspect]
     Active Substance: DASABUVIR\OMBITASVIR\PARITAPREVIR\RITONAVIR
     Indication: HEPATITIS C
     Dosage: TWO PINK AND ONE BEIGE IN THE MORNING AND ONE BEIGE IN THE EVENING
     Route: 048
     Dates: start: 201606, end: 20160730
  2. RIBAVIRIN. [Suspect]
     Active Substance: RIBAVIRIN
     Indication: PRODUCT USED FOR UNKNOWN INDICATION
     Route: 048
     Dates: start: 201606, end: 20160730

REACTIONS (11)
  - Dehydration [Recovering/Resolving]
  - Sepsis [Recovering/Resolving]
  - Blood electrolytes abnormal [Recovering/Resolving]
  - Decreased appetite [Recovering/Resolving]
  - Pneumonia [Recovering/Resolving]
  - Asthenia [Recovering/Resolving]
  - Insomnia [Recovering/Resolving]
  - Irritability [Recovering/Resolving]
  - Weight decreased [Recovering/Resolving]
  - Hiccups [Unknown]
  - Carbon dioxide abnormal [Recovering/Resolving]

NARRATIVE: CASE EVENT DATE: 201607
